FAERS Safety Report 6210704-6 (Version None)
Quarter: 2009Q2

REPORT INFORMATION
  Report Type: 
  Country: None (occurrence: None)
  Receive Date: 20090528
  Receipt Date: 20090528
  Transmission Date: 20091009
  Serious: Yes (Hospitalization)
  Sender: FDA-Public Use
  Company Number: None

PATIENT
  Sex: Female
  Weight: 55.7 kg

DRUGS (1)
  1. ETOMIDATE [Suspect]
     Dosage: 20MG IV
     Route: 042
     Dates: start: 20090211, end: 20090211

REACTIONS (5)
  - ADRENOCORTICAL INSUFFICIENCY ACUTE [None]
  - BLOOD DISORDER [None]
  - HYPOPERFUSION [None]
  - NERVOUS SYSTEM DISORDER [None]
  - RENAL IMPAIRMENT [None]
